FAERS Safety Report 20423612 (Version 7)
Quarter: 2025Q2

REPORT INFORMATION
  Report Type: Spontaneous
  Country: JP (occurrence: JP)
  Receive Date: 20220203
  Receipt Date: 20250620
  Transmission Date: 20250717
  Serious: Yes (Hospitalization, Other)
  Sender: LUNDBECK
  Company Number: JP-SANOFI-2017SA268989

PATIENT
  Age: 19 Month
  Sex: Female
  Weight: 8.8 kg

DRUGS (71)
  1. SABRIL [Suspect]
     Active Substance: VIGABATRIN
     Indication: Infantile spasms
     Dosage: 150 MG, BID
     Route: 048
     Dates: start: 20160921, end: 20160925
  2. SABRIL [Suspect]
     Active Substance: VIGABATRIN
     Dosage: 300 MG, BID
     Route: 048
     Dates: start: 20170212, end: 20170218
  3. SABRIL [Suspect]
     Active Substance: VIGABATRIN
     Dosage: 225 MG, BID
     Route: 048
     Dates: start: 20170219, end: 20170223
  4. SABRIL [Suspect]
     Active Substance: VIGABATRIN
     Dosage: 150 MG, BID
     Route: 048
     Dates: start: 20170224, end: 20170306
  5. SABRIL [Suspect]
     Active Substance: VIGABATRIN
     Dosage: 75 MG, BID
     Route: 048
     Dates: start: 20170307, end: 20170313
  6. SABRIL [Suspect]
     Active Substance: VIGABATRIN
     Dosage: 375 MG, BID
     Route: 048
     Dates: start: 20180220, end: 20180322
  7. SABRIL [Suspect]
     Active Substance: VIGABATRIN
     Dosage: 375 MG, BID
     Route: 048
     Dates: start: 20180323, end: 20180417
  8. SABRIL [Suspect]
     Active Substance: VIGABATRIN
     Dosage: 375 MG, BID
     Route: 048
     Dates: start: 20180926, end: 20181010
  9. SABRIL [Suspect]
     Active Substance: VIGABATRIN
     Dosage: 400 MG, BID
     Route: 048
     Dates: start: 20200219, end: 20200304
  10. SABRIL [Suspect]
     Active Substance: VIGABATRIN
     Dosage: 400 MG, BID
     Route: 048
     Dates: start: 20200305, end: 20200317
  11. SABRIL [Suspect]
     Active Substance: VIGABATRIN
     Dosage: 400 MG, BID
     Route: 048
     Dates: start: 20200318, end: 20200417
  12. SABRIL [Suspect]
     Active Substance: VIGABATRIN
     Dosage: 300 MG, BID
     Route: 048
     Dates: start: 20160926, end: 20161003
  13. SABRIL [Suspect]
     Active Substance: VIGABATRIN
     Dosage: 400 MG, BID
     Route: 048
     Dates: start: 20200418, end: 20200519
  14. SABRIL [Suspect]
     Active Substance: VIGABATRIN
     Dosage: 400 MG, BID
     Route: 048
     Dates: start: 20200520, end: 20200610
  15. SABRIL [Suspect]
     Active Substance: VIGABATRIN
     Dosage: 400 MG, BID
     Route: 048
     Dates: start: 20200611, end: 20200707
  16. SABRIL [Suspect]
     Active Substance: VIGABATRIN
     Dosage: 400 MG, BID
     Route: 048
     Dates: start: 20200805, end: 20200902
  17. SABRIL [Suspect]
     Active Substance: VIGABATRIN
     Dosage: 400 MG, BID
     Route: 048
     Dates: start: 20201209, end: 20210106
  18. SABRIL [Suspect]
     Active Substance: VIGABATRIN
     Dosage: 400 MG, BID
     Route: 048
     Dates: start: 20210107, end: 20210210
  19. SABRIL [Suspect]
     Active Substance: VIGABATRIN
     Dosage: 400 MG, BID
     Route: 048
     Dates: start: 20210211, end: 20210310
  20. SABRIL [Suspect]
     Active Substance: VIGABATRIN
     Dosage: 400 MG, BID
     Route: 048
     Dates: start: 20210311, end: 20210406
  21. SABRIL [Suspect]
     Active Substance: VIGABATRIN
     Dosage: 400 MG, BID
     Route: 048
     Dates: start: 20210407, end: 20210505
  22. SABRIL [Suspect]
     Active Substance: VIGABATRIN
     Dosage: 400 MG, BID
     Route: 048
     Dates: start: 20210706, end: 20210803
  23. SABRIL [Suspect]
     Active Substance: VIGABATRIN
     Dosage: 450 MG, BID
     Route: 048
     Dates: start: 20161004, end: 20161007
  24. SABRIL [Suspect]
     Active Substance: VIGABATRIN
     Dosage: 400 MG, BID
     Route: 048
     Dates: start: 20210804, end: 20210831
  25. SABRIL [Suspect]
     Active Substance: VIGABATRIN
     Dosage: 400 MG, BID
     Route: 048
     Dates: start: 20210901, end: 20210928
  26. SABRIL [Suspect]
     Active Substance: VIGABATRIN
     Dosage: 400 MG, BID
     Route: 048
     Dates: start: 20210929, end: 20211027
  27. SABRIL [Suspect]
     Active Substance: VIGABATRIN
     Dosage: 400 MG, BID
     Route: 048
     Dates: start: 20220112, end: 20220209
  28. SABRIL [Suspect]
     Active Substance: VIGABATRIN
     Dosage: 400 MG, BID
     Route: 048
     Dates: start: 20220210, end: 20220311
  29. SABRIL [Suspect]
     Active Substance: VIGABATRIN
     Dosage: 400 MG, BID
     Route: 048
     Dates: start: 20220315, end: 20220414
  30. SABRIL [Suspect]
     Active Substance: VIGABATRIN
     Dosage: 400 MG, BID
     Route: 048
     Dates: start: 20220803, end: 20220902
  31. SABRIL [Suspect]
     Active Substance: VIGABATRIN
     Dosage: 400 MG, BID
     Route: 048
     Dates: start: 20220903, end: 20221014
  32. SABRIL [Suspect]
     Active Substance: VIGABATRIN
     Dosage: 400 MG, BID
     Route: 048
     Dates: start: 20221015, end: 20221111
  33. SABRIL [Suspect]
     Active Substance: VIGABATRIN
     Dosage: 400 MG, BID
     Route: 048
     Dates: start: 20230118, end: 20230217
  34. SABRIL [Suspect]
     Active Substance: VIGABATRIN
     Dosage: 300 MG, BID
     Route: 048
     Dates: start: 20161008, end: 20161013
  35. SABRIL [Suspect]
     Active Substance: VIGABATRIN
     Dosage: 400 MG, BID
     Route: 048
     Dates: start: 20230218, end: 20230317
  36. SABRIL [Suspect]
     Active Substance: VIGABATRIN
     Dosage: 400 MG, BID
     Route: 048
     Dates: start: 20230318, end: 20230414
  37. SABRIL [Suspect]
     Active Substance: VIGABATRIN
     Dosage: 400 MG, BID
     Route: 048
     Dates: start: 20230415, end: 20230511
  38. SABRIL [Suspect]
     Active Substance: VIGABATRIN
     Dosage: 400 MG, BID
     Route: 048
     Dates: start: 20230512, end: 20230615
  39. SABRIL [Suspect]
     Active Substance: VIGABATRIN
     Dosage: 400 MG, BID
     Route: 048
     Dates: start: 20230616, end: 20230713
  40. SABRIL [Suspect]
     Active Substance: VIGABATRIN
     Dosage: 400 MG, BID
     Route: 048
     Dates: start: 20230714, end: 20230811
  41. SABRIL [Suspect]
     Active Substance: VIGABATRIN
     Dosage: 400 MG, BID
     Route: 048
     Dates: start: 20230812, end: 20230915
  42. SABRIL [Suspect]
     Active Substance: VIGABATRIN
     Dosage: 400 MG, BID
     Route: 048
     Dates: start: 20231017, end: 20231116
  43. SABRIL [Suspect]
     Active Substance: VIGABATRIN
     Dosage: 375 MG, BID
     Route: 048
     Dates: start: 20161014, end: 20170211
  44. SABRIL [Suspect]
     Active Substance: VIGABATRIN
     Dosage: 150 MG, BID
     Route: 048
     Dates: start: 20170804, end: 20171005
  45. SABRIL [Suspect]
     Active Substance: VIGABATRIN
     Dosage: 225 MG, BID
     Route: 048
     Dates: start: 20171006, end: 20171012
  46. SABRIL [Suspect]
     Active Substance: VIGABATRIN
     Dosage: 300 MG, BID
     Route: 048
     Dates: start: 20171013, end: 20171116
  47. SABRIL [Suspect]
     Active Substance: VIGABATRIN
     Dosage: 375 MG, BID
     Route: 048
     Dates: start: 20171117, end: 20180729
  48. LEVETIRACETAM [Concomitant]
     Active Substance: LEVETIRACETAM
     Indication: Infantile spasms
     Route: 048
     Dates: end: 20170803
  49. LEVETIRACETAM [Concomitant]
     Active Substance: LEVETIRACETAM
     Route: 048
     Dates: start: 20170804, end: 20170922
  50. LEVETIRACETAM [Concomitant]
     Active Substance: LEVETIRACETAM
     Dates: start: 20170923, end: 20210702
  51. ZONISAMIDE [Concomitant]
     Active Substance: ZONISAMIDE
     Indication: Infantile spasms
     Route: 048
  52. ZONISAMIDE [Concomitant]
     Active Substance: ZONISAMIDE
     Dates: end: 20210221
  53. TRICHLORMETHIAZIDE [Concomitant]
     Active Substance: TRICHLORMETHIAZIDE
     Indication: Nephrolithiasis
  54. LEVOTHYROXINE SODIUM [Concomitant]
     Active Substance: LEVOTHYROXINE SODIUM
     Indication: Product used for unknown indication
     Route: 048
     Dates: end: 20161023
  55. CARBOCYSTEINE [Concomitant]
     Active Substance: CARBOCYSTEINE
     Indication: Nephrolithiasis
     Route: 048
     Dates: end: 20161213
  56. CARBOCYSTEINE [Concomitant]
     Active Substance: CARBOCYSTEINE
     Route: 048
     Dates: start: 20161214, end: 20180727
  57. CARBOCYSTEINE [Concomitant]
     Active Substance: CARBOCYSTEINE
     Dates: start: 20180728, end: 20181028
  58. CARBOCYSTEINE [Concomitant]
     Active Substance: CARBOCYSTEINE
     Dates: start: 20181029
  59. TAURINE [Concomitant]
     Active Substance: TAURINE
     Indication: Prophylaxis
     Route: 048
     Dates: start: 20160921, end: 20170316
  60. TAURINE [Concomitant]
     Active Substance: TAURINE
     Indication: Investigation
     Route: 048
     Dates: start: 20170804, end: 20170922
  61. TAURINE [Concomitant]
     Active Substance: TAURINE
     Dates: start: 20170923
  62. VITAMINS [Concomitant]
     Active Substance: VITAMINS
     Indication: Prophylaxis
  63. VITAMINS [Concomitant]
     Active Substance: VITAMINS
     Indication: Investigation
     Dates: start: 20181010
  64. CARTINE L [Concomitant]
     Indication: Prophylaxis
  65. CARTINE L [Concomitant]
     Indication: Investigation
     Dates: start: 20181010
  66. URALYT URATO [Concomitant]
     Indication: Nephrolithiasis
     Dates: start: 20181029, end: 20181230
  67. URALYT URATO [Concomitant]
     Dates: start: 20181231, end: 20190204
  68. URALYT URATO [Concomitant]
     Dates: start: 20190205
  69. ALLOPURINOL [Concomitant]
     Active Substance: ALLOPURINOL
     Indication: Nephrolithiasis
     Dates: start: 20181029
  70. RIKKUNSHITO [ATRACTYLODES LANCEA RHIZOME;CITRUS X AURANTIUM PEEL;GLYCY [Concomitant]
     Indication: Prophylaxis
     Dates: start: 20200904
  71. RIKKUNSHITO [ATRACTYLODES LANCEA RHIZOME;CITRUS X AURANTIUM PEEL;GLYCY [Concomitant]
     Indication: Investigation

REACTIONS (7)
  - Delayed light adaptation [Recovered/Resolved]
  - Retinogram abnormal [Recovered/Resolved]
  - Visual field defect [Not Recovered/Not Resolved]
  - Delayed dark adaptation [Recovered/Resolved]
  - Pneumonia aspiration [Recovered/Resolved]
  - Bronchitis [Recovered/Resolved]
  - Somnolence [Recovered/Resolved]

NARRATIVE: CASE EVENT DATE: 20161012
